FAERS Safety Report 7339284-9 (Version None)
Quarter: 2011Q1

REPORT INFORMATION
  Report Type: 
  Country: None (occurrence: None)
  Receive Date: 20110308
  Receipt Date: 20110223
  Transmission Date: 20110831
  Serious: Yes (Life-Threatening)
  Sender: FDA-Public Use
  Company Number: IT-CELGENEUS-083-21880-11012980

PATIENT
  Sex: Male

DRUGS (9)
  1. REVLIMID [Suspect]
     Indication: MULTIPLE MYELOMA
     Dosage: 25 MILLIGRAM
     Route: 048
     Dates: start: 20110119
  2. VALACICLOVIR [Concomitant]
     Route: 065
  3. ALLOPURINOL [Concomitant]
     Route: 065
  4. PANTECTA [Concomitant]
     Route: 065
  5. PROVISACOR [Concomitant]
     Route: 065
  6. CLEXANE [Concomitant]
     Route: 065
  7. BACTRIM [Concomitant]
     Route: 065
  8. LOSAZID [Concomitant]
     Route: 065
  9. KEPPRA [Concomitant]
     Route: 065

REACTIONS (1)
  - PNEUMONIA [None]
